FAERS Safety Report 8070495-3 (Version None)
Quarter: 2012Q1

REPORT INFORMATION
  Report Type: 
  Country: None (occurrence: None)
  Receive Date: 20120125
  Receipt Date: 20120119
  Transmission Date: 20120608
  Serious: Yes (Other)
  Sender: FDA-Public Use
  Company Number: US-JNJFOC-20120108611

PATIENT
  Sex: Male
  Weight: 84.37 kg

DRUGS (2)
  1. INVEGA SUSTENNA [Suspect]
     Indication: SCHIZOPHRENIA
     Route: 030
     Dates: start: 20090101
  2. PROZAC [Concomitant]
     Indication: ANXIETY
     Route: 048
     Dates: start: 19920101

REACTIONS (2)
  - NEUTROPHIL COUNT INCREASED [None]
  - BORDERLINE GLAUCOMA [None]
